FAERS Safety Report 9338718 (Version 5)
Quarter: 2014Q1

REPORT INFORMATION
  Report Type: Report from Study
  Country: JP (occurrence: JP)
  Receive Date: 20130610
  Receipt Date: 20140210
  Transmission Date: 20141002
  Serious: Yes (Other)
  Sender: FDA-Public Use
  Company Number: JP-AMGEN-JPNSP2013040427

PATIENT
  Age: 70 Year
  Sex: Male
  Weight: 54 kg

DRUGS (8)
  1. DENOSUMAB [Suspect]
     Indication: METASTASES TO BONE
     Dosage: 120 MG, QD/2012/08/23, 09/20, 10/18, 11/20, 12/20, 2013/01/17, 02/14, 03/22, 04/18, 05/16
     Route: 058
     Dates: start: 20120823, end: 20130516
  2. SUTENT [Suspect]
     Indication: METASTASES TO BONE
     Dosage: 50 MG, QD
     Route: 048
     Dates: start: 20110524, end: 20130218
  3. INLYTA [Suspect]
     Indication: METASTASES TO BONE
     Dosage: 5 MG, BID
     Route: 048
     Dates: start: 20010218, end: 20130719
  4. AFINITOR [Concomitant]
     Indication: METASTASES TO BONE
     Dosage: UNKNOWN
     Route: 065
     Dates: start: 20130720
  5. ONEALFA [Concomitant]
     Route: 048
     Dates: start: 20120823, end: 20120919
  6. ASPARA-CA [Concomitant]
     Dosage: UNK
     Route: 048
     Dates: start: 20120823, end: 20130910
  7. THYRADIN [Concomitant]
     Route: 048
     Dates: start: 20110719
  8. AMLODINE                           /00972401/ [Concomitant]
     Route: 048
     Dates: start: 20121220, end: 20130719

REACTIONS (1)
  - Osteonecrosis of jaw [Not Recovered/Not Resolved]
